FAERS Safety Report 4275120-5 (Version None)
Quarter: 2004Q1

REPORT INFORMATION
  Report Type: 
  Country: None (occurrence: None)
  Receive Date: 20040116
  Receipt Date: 20040106
  Transmission Date: 20041129
  Serious: Yes (Hospitalization, Other)
  Sender: FDA-Public Use
  Company Number: 2003017644

PATIENT
  Age: 45 Year
  Sex: Male
  Weight: 660000 kg

DRUGS (2)
  1. VIRACEPT [Suspect]
     Indication: HIV INFECTION
     Dosage: (DAILY), ORAL
     Route: 048
     Dates: start: 19990618
  2. ZIDOVUDINE W/LAMIVUDINE (ZIDOVUDINE, LAMIVUDINE) [Suspect]
     Indication: HIV INFECTION
     Dosage: (DAILY), ORAL
     Route: 048
     Dates: start: 19990618

REACTIONS (8)
  - ARTHRALGIA [None]
  - FALL [None]
  - FEMORAL NECK FRACTURE [None]
  - GAIT DISTURBANCE [None]
  - PATHOLOGICAL FRACTURE [None]
  - SPORTS INJURY [None]
  - SURGICAL PROCEDURE REPEATED [None]
  - VITAMIN D DECREASED [None]
